FAERS Safety Report 5018174-0 (Version None)
Quarter: 2006Q2

REPORT INFORMATION
  Report Type: 
  Country: None (occurrence: None)
  Receive Date: 20060530
  Receipt Date: 20060515
  Transmission Date: 20061013
  Serious: Yes (Hospitalization)
  Sender: FDA-Public Use
  Company Number: 2006063779

PATIENT
  Age: 78 Year
  Sex: Female

DRUGS (3)
  1. CABERGOLINE [Suspect]
     Indication: ILL-DEFINED DISORDER
     Dosage: (0.5 MG) ORAL
     Route: 048
  2. ASPIRIN [Concomitant]
  3. INDAPAMIDE [Concomitant]

REACTIONS (8)
  - ACCIDENTAL EXPOSURE [None]
  - ANXIETY [None]
  - BLOOD PRESSURE DECREASED [None]
  - CONFUSIONAL STATE [None]
  - HALLUCINATION [None]
  - INCORRECT DOSE ADMINISTERED [None]
  - PSYCHOTIC DISORDER [None]
  - WRONG DRUG ADMINISTERED [None]
